FAERS Safety Report 4319501-X (Version None)
Quarter: 2004Q1

REPORT INFORMATION
  Report Type: 
  Country: None (occurrence: None)
  Receive Date: 20040318
  Receipt Date: 20040316
  Transmission Date: 20041129
  Serious: Yes (Death)
  Sender: FDA-Public Use
  Company Number: 04-03-0381

PATIENT
  Age: 56 Year
  Sex: Female

DRUGS (1)
  1. CLOZAPINE [Suspect]
     Indication: SCHIZOAFFECTIVE DISORDER
     Dosage: 300MG QD ORAL
     Route: 048
     Dates: start: 20040201, end: 20040201

REACTIONS (3)
  - CHOKING [None]
  - INJURY ASPHYXIATION [None]
  - MYOCARDIAL INFARCTION [None]
